FAERS Safety Report 14768112 (Version 2)
Quarter: 2018Q2

REPORT INFORMATION
  Report Type: Spontaneous
  Country: CN (occurrence: CN)
  Receive Date: 20180417
  Receipt Date: 20180518
  Transmission Date: 20180711
  Serious: Yes (Death)
  Sender: FDA-Public Use
  Company Number: CN-FERRINGPH-2018FE01665

PATIENT

DRUGS (1)
  1. PROPESS [Suspect]
     Active Substance: DINOPROSTONE
     Indication: INDUCTION OF CERVIX RIPENING
     Dosage: ONCE/SINGLE
     Route: 067
     Dates: start: 201802, end: 201802

REACTIONS (1)
  - Anaphylactoid syndrome of pregnancy [Fatal]

NARRATIVE: CASE EVENT DATE: 201802
